FAERS Safety Report 6923857-9 (Version None)
Quarter: 2010Q3

REPORT INFORMATION
  Report Type: 
  Country: None (occurrence: None)
  Receive Date: 20100813
  Receipt Date: 20091118
  Transmission Date: 20110219
  Serious: No
  Sender: FDA-Public Use
  Company Number: US-BRISTOL-MYERS SQUIBB COMPANY-14862221

PATIENT

DRUGS (1)
  1. REYATAZ [Suspect]
     Indication: HIV INFECTION
     Dosage: NORMAL DOSE IS 300MG -400MG QD

REACTIONS (1)
  - OVERDOSE [None]
